FAERS Safety Report 6485915-5 (Version None)
Quarter: 2009Q4

REPORT INFORMATION
  Report Type: 
  Country: None (occurrence: None)
  Receive Date: 20091204
  Receipt Date: 20091125
  Transmission Date: 20100525
  Serious: No
  Sender: FDA-Public Use
  Company Number: 20097711

PATIENT
  Sex: Male

DRUGS (1)
  1. LIORESAL [Suspect]
     Indication: MUSCLE SPASTICITY
     Dosage: 142 MCG, DAILY, INTRATHECAL
     Route: 037

REACTIONS (10)
  - BALANCE DISORDER [None]
  - CONDITION AGGRAVATED [None]
  - DEPRESSION [None]
  - FALL [None]
  - LETHARGY [None]
  - MENSTRUAL DISORDER [None]
  - MUSCLE SPASTICITY [None]
  - PARAESTHESIA [None]
  - RADICULAR PAIN [None]
  - UNDERDOSE [None]
